FAERS Safety Report 17398662 (Version 1)
Quarter: 2020Q1

REPORT INFORMATION
  Report Type: Spontaneous
  Country: US (occurrence: US)
  Receive Date: 20200210
  Receipt Date: 20200210
  Transmission Date: 20200409
  Serious: No
  Sender: FDA-Public Use
  Company Number: US-VAYAPHARMA-2018-US-014857

PATIENT
  Age: 5 Year
  Sex: Male

DRUGS (2)
  1. VAYARIN (NON-SPECIFIC) [Suspect]
     Active Substance: DOCONEXENT\ICOSAPENT\PHOSPHATIDYL SERINE
     Indication: ATTENTION DEFICIT/HYPERACTIVITY DISORDER
     Route: 048
  2. FISH OIL [Concomitant]
     Active Substance: FISH OIL

REACTIONS (3)
  - Taste disorder [Recovered/Resolved]
  - Therapeutic product ineffective [Unknown]
  - Aggression [Recovered/Resolved]
